FAERS Safety Report 5146683-2 (Version None)
Quarter: 2006Q4

REPORT INFORMATION
  Report Type: 
  Country: None (occurrence: None)
  Receive Date: 20061107
  Receipt Date: 20061107
  Transmission Date: 20070319
  Serious: Yes (Disabling)
  Sender: FDA-Public Use
  Company Number: None

PATIENT
  Age: 93 Year
  Sex: Male
  Weight: 66 kg

DRUGS (12)
  1. IODIXANOL 320 MGL/ML AMERSHAM HEALTH [Suspect]
     Indication: SCAN WITH CONTRAST
     Dosage: 150ML ONCE IV BOLUS
     Route: 040
     Dates: start: 20060315, end: 20060315
  2. METOLAZONE [Concomitant]
  3. LISINOPRIL [Concomitant]
  4. ESOMEPRAZOLE MAGNESIUM [Concomitant]
  5. FENTANYL TRANSDERMAL SYSTEM [Concomitant]
  6. LEVOTHYROXINE SODIUM [Concomitant]
  7. ASPIRIN [Concomitant]
  8. ONDASETRON [Concomitant]
  9. DILTIAZEM HCL [Concomitant]
  10. TRAZODONE HCL [Concomitant]
  11. MULTIPLE VITAMIN [Concomitant]
  12. FUROSEMIDE [Concomitant]

REACTIONS (10)
  - CONTRAST MEDIA REACTION [None]
  - CULTURE URINE POSITIVE [None]
  - EFFUSION [None]
  - ENTEROCOCCAL INFECTION [None]
  - OEDEMA PERIPHERAL [None]
  - OXYGEN CONSUMPTION INCREASED [None]
  - PANCREATIC CYST [None]
  - PYREXIA [None]
  - RENAL TUBULAR NECROSIS [None]
  - WEIGHT INCREASED [None]
